FAERS Safety Report 25269219 (Version 9)
Quarter: 2025Q4

REPORT INFORMATION
  Report Type: Spontaneous
  Country: US (occurrence: US)
  Receive Date: 20250505
  Receipt Date: 20251117
  Transmission Date: 20260118
  Serious: No
  Sender: PFIZER
  Company Number: US-PFIZER INC-202500088912

PATIENT
  Age: 71 Year
  Sex: Female

DRUGS (1)
  1. GENOTROPIN [Suspect]
     Active Substance: SOMATROPIN
     Dosage: 0.4MG DAILY INJECTION

REACTIONS (5)
  - Device mechanical issue [Unknown]
  - Liquid product physical issue [Unknown]
  - Product preparation issue [Unknown]
  - Drug administered in wrong device [Unknown]
  - Device breakage [Unknown]

NARRATIVE: CASE EVENT DATE: 20250915
